FAERS Safety Report 10235947 (Version 1)
Quarter: 2014Q2

REPORT INFORMATION
  Report Type: Spontaneous
  Country: NL (occurrence: NL)
  Receive Date: 20140613
  Receipt Date: 20140613
  Transmission Date: 20141212
  Serious: Yes (Other)
  Sender: FDA-Public Use
  Company Number: NL-009507513-1406NLD004441

PATIENT
  Age: 31 Year
  Sex: Male
  Weight: 83 kg

DRUGS (1)
  1. MIRTAZAPINE ORODISPERGEERBARE TABLETTEN [Suspect]
     Indication: DEPRESSION
     Dosage: 15 MG, QD, 1 DD 4
     Route: 048
     Dates: start: 200911

REACTIONS (2)
  - Scar [Not Recovered/Not Resolved]
  - Penis disorder [Not Recovered/Not Resolved]
